FAERS Safety Report 9339171 (Version 1)
Quarter: 2013Q2

REPORT INFORMATION
  Report Type: Spontaneous
  Country: US (occurrence: US)
  Receive Date: 20130610
  Receipt Date: 20130610
  Transmission Date: 20140414
  Serious: Yes (Other)
  Sender: FDA-Public Use
  Company Number: US-BAYER-2013-066990

PATIENT
  Sex: Female

DRUGS (1)
  1. MIRENA [Suspect]
     Indication: CONTRACEPTION
     Dosage: UNK
     Route: 015
     Dates: start: 201104

REACTIONS (7)
  - Cervix carcinoma [None]
  - Adnexa uteri pain [None]
  - Adnexa uteri pain [None]
  - Amenorrhoea [None]
  - Genital haemorrhage [None]
  - Device issue [None]
  - Device dislocation [None]
